FAERS Safety Report 24263977 (Version 1)
Quarter: 2024Q3

REPORT INFORMATION
  Report Type: Report from Study
  Country: PK (occurrence: PK)
  Receive Date: 20240829
  Receipt Date: 20240829
  Transmission Date: 20241017
  Serious: Yes (Hospitalization, Other)
  Sender: SANOFI AVENTIS
  Company Number: PK-SA-2018SA221529

PATIENT
  Sex: Female

DRUGS (1)
  1. INSULIN GLARGINE [Suspect]
     Active Substance: INSULIN GLARGINE
     Indication: Diabetes mellitus
     Dosage: 10 IU, HS
     Route: 058

REACTIONS (4)
  - Renal surgery [Unknown]
  - Diabetic nephropathy [Recovered/Resolved]
  - Blood glucose abnormal [Recovered/Resolved]
  - Product dose omission issue [Unknown]
